FAERS Safety Report 5828546-X (Version None)
Quarter: 2008Q3

REPORT INFORMATION
  Report Type: 
  Country: None (occurrence: None)
  Receive Date: 20080731
  Receipt Date: 20080724
  Transmission Date: 20090109
  Serious: Yes (Death)
  Sender: FDA-Public Use
  Company Number: US-GILEAD-2008-0017528

PATIENT
  Sex: Female

DRUGS (6)
  1. VIREAD [Suspect]
     Route: 048
     Dates: start: 20080312
  2. LAMIVUDINE [Concomitant]
     Route: 048
     Dates: start: 20080213
  3. LAMIVUDINE [Concomitant]
     Route: 048
     Dates: end: 20080213
  4. LOPINAVIR AND RITONAVIR [Concomitant]
     Route: 048
     Dates: start: 20080227
  5. ATAZANAVIR SULFATE [Concomitant]
     Route: 048
     Dates: start: 20080227
  6. ZIDOVUDINE [Concomitant]
     Route: 048
     Dates: start: 20080213

REACTIONS (2)
  - PREMATURE BABY [None]
  - RESPIRATORY DISTRESS [None]
